FAERS Safety Report 25778540 (Version 1)
Quarter: 2025Q3

REPORT INFORMATION
  Report Type: Spontaneous
  Country: US (occurrence: US)
  Receive Date: 20250909
  Receipt Date: 20250909
  Transmission Date: 20251021
  Serious: Yes (Other)
  Sender: SANOFI AVENTIS
  Company Number: US-SA-2025SA268742

PATIENT
  Sex: Female
  Weight: 74.38 kg

DRUGS (10)
  1. DUPIXENT [Suspect]
     Active Substance: DUPILUMAB
     Indication: Asthma
     Dosage: 300 MG, QOW
     Route: 058
  2. CYCLOSERINE [Concomitant]
     Active Substance: CYCLOSERINE
  3. HERBALS\TURMERIC [Concomitant]
     Active Substance: HERBALS\TURMERIC
  4. COLLAGEN [Concomitant]
     Active Substance: COLLAGEN
  5. OMEGA 3 + VITAMIN D [Concomitant]
  6. ALLOPURINOL [Concomitant]
     Active Substance: ALLOPURINOL
  7. ADVAIR HFA [Concomitant]
     Active Substance: FLUTICASONE PROPIONATE\SALMETEROL XINAFOATE
  8. SINGULAIR [Concomitant]
     Active Substance: MONTELUKAST SODIUM
  9. REPATHA [Concomitant]
     Active Substance: EVOLOCUMAB
  10. VISION SHIELD EYE HEALTH [Concomitant]

REACTIONS (2)
  - Glaucoma [Not Recovered/Not Resolved]
  - Drug ineffective [Unknown]
